FAERS Safety Report 21729826 (Version 1)
Quarter: 2022Q4

REPORT INFORMATION
  Report Type: Spontaneous
  Country: US (occurrence: US)
  Receive Date: 20221214
  Receipt Date: 20221214
  Transmission Date: 20230112
  Serious: No
  Sender: FDA-Public Use
  Company Number: US-PFIZER INC-202201367604

PATIENT
  Age: 86 Year
  Sex: Female
  Weight: 58.51 kg

DRUGS (1)
  1. SPIRONOLACTONE [Suspect]
     Active Substance: SPIRONOLACTONE
     Dosage: 25 MG, 1X/DAY (1 -25MG TABLET ONCE DAILY)

REACTIONS (2)
  - Drug ineffective [Unknown]
  - Weight increased [Unknown]
